FAERS Safety Report 8925854 (Version 3)
Quarter: 2013Q4

REPORT INFORMATION
  Report Type: Report from Study
  Country: AU (occurrence: AU)
  Receive Date: 20121126
  Receipt Date: 20131003
  Transmission Date: 20140711
  Serious: Yes (Hospitalization)
  Sender: FDA-Public Use
  Company Number: PHHY2012AU106832

PATIENT
  Age: 40 Year
  Sex: Male

DRUGS (14)
  1. CLOZARIL [Suspect]
     Indication: SCHIZOPHRENIA
     Dosage: 250 MG, DAILY
     Dates: start: 20111102, end: 20121110
  2. ARIPIPRAZOLE [Concomitant]
     Dosage: 15 MG, MORNING
  3. SUBOXONE [Concomitant]
     Dosage: 16 MG, DAILY
  4. SEREPAX [Concomitant]
     Dosage: 30 MG, DAILY
  5. DIAZEPAM [Concomitant]
     Dosage: UNK (5 TO 10 MG DAILY)
  6. DIAZEPAM [Concomitant]
     Dosage: 5 MG, QID
  7. QUETIAPINE [Concomitant]
     Indication: SCHIZOPHRENIA
     Dosage: 50 MG, DAILY
  8. QUETIAPINE [Concomitant]
     Dosage: 25 MG, TID
  9. BUPRENORPHINE [Concomitant]
     Dosage: 12 MG, DAILY
  10. SEROQUEL [Concomitant]
     Dosage: UNK
  11. CODEINE [Concomitant]
     Dosage: UNK
  12. OXAZEPAM [Concomitant]
     Dosage: UNK
  13. ENOXAPARIN SODIUM [Concomitant]
     Dosage: UNK
  14. BENZODIAZEPINES [Concomitant]
     Dosage: UNK

REACTIONS (22)
  - Lung consolidation [Unknown]
  - Conjunctivitis [Unknown]
  - Musculoskeletal stiffness [Unknown]
  - Productive cough [Not Recovered/Not Resolved]
  - Photophobia [Recovering/Resolving]
  - Malaise [Recovering/Resolving]
  - Vision blurred [Unknown]
  - Hallucination, visual [Unknown]
  - Confusional state [Unknown]
  - Delirium [Unknown]
  - Nausea [Unknown]
  - Thinking abnormal [Unknown]
  - Mental impairment [Unknown]
  - Sinus tachycardia [Unknown]
  - Neuroleptic malignant syndrome [Recovering/Resolving]
  - Pneumonia [Recovering/Resolving]
  - Pyrexia [Unknown]
  - Dizziness [Recovering/Resolving]
  - Headache [Recovering/Resolving]
  - Blood creatine decreased [Not Recovered/Not Resolved]
  - Antipsychotic drug level increased [Unknown]
  - Haemoglobin decreased [Not Recovered/Not Resolved]
